FAERS Safety Report 5322490-2 (Version None)
Quarter: 2007Q2

REPORT INFORMATION
  Report Type: 
  Country: None (occurrence: None)
  Receive Date: 20070511
  Receipt Date: 20070507
  Transmission Date: 20071010
  Serious: Yes (Other)
  Sender: FDA-Public Use
  Company Number: US-MERCK-0705USA01667

PATIENT
  Weight: 2 kg

DRUGS (4)
  1. INDINAVIR [Suspect]
     Route: 064
  2. ZIDOVUDINE [Concomitant]
     Route: 064
  3. ZIDOVUDINE [Concomitant]
     Route: 064
  4. LAMIVUDINE [Concomitant]
     Route: 064

REACTIONS (2)
  - PREMATURE BABY [None]
  - SMALL FOR DATES BABY [None]
